FAERS Safety Report 5850757-8 (Version None)
Quarter: 2008Q3

REPORT INFORMATION
  Report Type: 
  Country: None (occurrence: None)
  Receive Date: 20080820
  Receipt Date: 20080814
  Transmission Date: 20090109
  Serious: Yes (Death)
  Sender: FDA-Public Use
  Company Number: GA-CELGENEUS-062-21880-07110876

PATIENT
  Age: 47 Year
  Sex: Female
  Weight: 47 kg

DRUGS (1)
  1. REVLIMID [Suspect]
     Indication: LEUKAEMIA PLASMACYTIC
     Route: 048
     Dates: start: 20070822, end: 20071016

REACTIONS (2)
  - DISEASE PROGRESSION [None]
  - MUSCLE SPASMS [None]
